FAERS Safety Report 17813620 (Version 1)
Quarter: 2020Q2

REPORT INFORMATION
  Report Type: Spontaneous
  Country: MY (occurrence: MY)
  Receive Date: 20200521
  Receipt Date: 20200521
  Transmission Date: 20200714
  Serious: Yes (Hospitalization, Other)
  Sender: FDA-Public Use
  Company Number: NVSC2020MY137057

PATIENT
  Age: 34 Year
  Sex: Female

DRUGS (2)
  1. ACETAMINOPHEN (PARACETAMOL) [Suspect]
     Active Substance: ACETAMINOPHEN
     Indication: PRODUCT USED FOR UNKNOWN INDICATION
     Dosage: 500 MG (50 TABLETS)
     Route: 065
  2. ACETYLCYSTEINE. [Concomitant]
     Active Substance: ACETYLCYSTEINE
     Indication: PRODUCT USED FOR UNKNOWN INDICATION
     Dosage: 150 MG/KG OVER 1 HOUR
     Route: 065

REACTIONS (6)
  - Abdominal pain upper [Unknown]
  - Hepatotoxicity [Recovered/Resolved]
  - Suicide attempt [Unknown]
  - Overdose [Unknown]
  - Vomiting [Unknown]
  - Toxicity to various agents [Unknown]
